FAERS Safety Report 23497077 (Version 1)
Quarter: 2024Q1

REPORT INFORMATION
  Report Type: Spontaneous
  Country: AU (occurrence: AU)
  Receive Date: 20240208
  Receipt Date: 20240208
  Transmission Date: 20240410
  Serious: Yes (Hospitalization, Other)
  Sender: FDA-Public Use
  Company Number: AU-JNJFOC-20230869301

PATIENT
  Age: 64 Year
  Sex: Male

DRUGS (2)
  1. IBUPROFEN [Suspect]
     Active Substance: IBUPROFEN
     Indication: Product used for unknown indication
     Dosage: UNK
     Route: 065
  2. IMBRUVICA [Suspect]
     Active Substance: IBRUTINIB
     Indication: Chronic lymphocytic leukaemia
     Dosage: PATIENT WAS ON IMBRUVICA FOR TWO YEARS.
     Route: 048

REACTIONS (4)
  - Pneumonia [Unknown]
  - Chronic lymphocytic leukaemia [Unknown]
  - Dyspnoea [Unknown]
  - Sluggishness [Unknown]
